FAERS Safety Report 15335339 (Version 1)
Quarter: 2018Q3

REPORT INFORMATION
  Report Type: Spontaneous
  Country: EC (occurrence: EC)
  Receive Date: 20180827
  Receipt Date: 20180827
  Transmission Date: 20181010
  Serious: Yes (Disabling, Other)
  Sender: FDA-Public Use
  Company Number: None

PATIENT
  Age: 44 Year
  Sex: Female
  Weight: 62.1 kg

DRUGS (1)
  1. VALSARTAN/HCT  160MG/12.5 [Suspect]
     Active Substance: HYDROCHLOROTHIAZIDE\VALSARTAN
     Indication: HYPERTENSION
     Dosage: ?          QUANTITY:1 DF DOSAGE FORM;?
     Route: 048
     Dates: start: 20170605, end: 20180720

REACTIONS (4)
  - Visual impairment [None]
  - Fatigue [None]
  - Recalled product [None]
  - Pruritus [None]

NARRATIVE: CASE EVENT DATE: 20180713
